FAERS Safety Report 20584012 (Version 1)
Quarter: 2022Q1

REPORT INFORMATION
  Report Type: Spontaneous
  Country: PL (occurrence: PL)
  Receive Date: 20220311
  Receipt Date: 20220311
  Transmission Date: 20220423
  Serious: Yes (Other)
  Sender: FDA-Public Use
  Company Number: PL-PFIZER INC-202200358680

PATIENT
  Age: 44 Year
  Sex: Female

DRUGS (2)
  1. FILGRASTIM [Suspect]
     Active Substance: FILGRASTIM
     Indication: Allogenic stem cell transplantation
     Dosage: 5 UG/ KGX2/D (6 DAYS)
  2. FILGRASTIM [Suspect]
     Active Substance: FILGRASTIM
     Indication: Focal segmental glomerulosclerosis

REACTIONS (1)
  - Haematuria [Recovered/Resolved]
